FAERS Safety Report 16393172 (Version 4)
Quarter: 2019Q3

REPORT INFORMATION
  Report Type: Report from Study
  Country: CO (occurrence: CO)
  Receive Date: 20190605
  Receipt Date: 20190709
  Transmission Date: 20191004
  Serious: Yes (Hospitalization, Other)
  Sender: FDA-Public Use
  Company Number: CO-ASTELLAS-2018US039796

PATIENT
  Age: 49 Year
  Sex: Female

DRUGS (10)
  1. VALGANCICLOVIR. [Suspect]
     Active Substance: VALGANCICLOVIR
     Indication: PRODUCT USED FOR UNKNOWN INDICATION
     Route: 065
     Dates: start: 20180712
  2. PREDNISOLONE. [Concomitant]
     Active Substance: PREDNISOLONE
     Route: 048
     Dates: start: 201905
  3. NIFEDIPINE. [Concomitant]
     Active Substance: NIFEDIPINE
     Indication: LIVER TRANSPLANT
     Dosage: 1 DF (CAPSULE), ONCE DAILY
     Route: 048
     Dates: start: 201905
  4. TACROLIMUS. [Suspect]
     Active Substance: TACROLIMUS
     Dosage: 10 MG, TWICE DAILY (5 MG IN THE MORNING AND 5 MG IN THE NIGHT)
     Route: 048
     Dates: start: 201812, end: 201901
  5. MYCOPHENOLATE [Concomitant]
     Active Substance: MYCOPHENOLIC ACID
     Indication: LIVER TRANSPLANT
     Route: 048
     Dates: start: 20180712
  6. PREDNISOLONE. [Concomitant]
     Active Substance: PREDNISOLONE
     Indication: LIVER TRANSPLANT
     Route: 048
     Dates: start: 20180712, end: 201905
  7. TACROLIMUS. [Suspect]
     Active Substance: TACROLIMUS
     Indication: LIVER TRANSPLANT
     Dosage: 8 MG (1 CAPSULE OF 5 MG AND 3 CAPSULE OF 1MG), ONCE DAILY
     Route: 048
     Dates: start: 20180712, end: 201901
  8. TACROLIMUS. [Suspect]
     Active Substance: TACROLIMUS
     Dosage: 10 MG (2 CAPSULE OF 5 MG), ONCE DAILY
     Route: 048
     Dates: start: 201901, end: 201905
  9. TACROLIMUS. [Suspect]
     Active Substance: TACROLIMUS
     Dosage: 5 MG (1 CAPSULE OF 5 MG), ONCE DAILY
     Route: 048
     Dates: start: 201905
  10. TACROLIMUS. [Suspect]
     Active Substance: TACROLIMUS
     Indication: LIVER TRANSPLANT
     Dosage: 4 MG, EVERY 12 HOURS (4 MG IN THE MORNING AND 4 MG IN THE NIGHT)
     Route: 048
     Dates: start: 20180712, end: 201812

REACTIONS (12)
  - Immunodeficiency [Not Recovered/Not Resolved]
  - Dizziness [Not Recovered/Not Resolved]
  - Nasal congestion [Not Recovered/Not Resolved]
  - Product dose omission [Unknown]
  - Product dose omission [Unknown]
  - Influenza [Not Recovered/Not Resolved]
  - Tremor [Not Recovered/Not Resolved]
  - Product availability issue [Unknown]
  - Nausea [Not Recovered/Not Resolved]
  - Bronchitis [Not Recovered/Not Resolved]
  - Product availability issue [Unknown]
  - Productive cough [Not Recovered/Not Resolved]

NARRATIVE: CASE EVENT DATE: 20180901
